FAERS Safety Report 9009413 (Version 1)
Quarter: 2013Q1

REPORT INFORMATION
  Report Type: Spontaneous
  Country: GB (occurrence: GB)
  Receive Date: 20130111
  Receipt Date: 20130111
  Transmission Date: 20140127
  Serious: Yes (Other)
  Sender: FDA-Public Use
  Company Number: GB-ASTRAZENECA-2013SE01243

PATIENT
  Age: 81 Year
  Sex: Male

DRUGS (3)
  1. BRILIQUE [Suspect]
     Indication: STENT PLACEMENT
     Route: 048
  2. CLOPIDOGREL [Suspect]
     Route: 048
  3. PRASUGREL [Concomitant]

REACTIONS (6)
  - Carotid artery occlusion [Unknown]
  - Heart rate decreased [Unknown]
  - Impaired driving ability [Unknown]
  - Contusion [Unknown]
  - Dizziness [Not Recovered/Not Resolved]
  - Dermatitis allergic [Unknown]
